FAERS Safety Report 21856954 (Version 2)
Quarter: 2023Q1

REPORT INFORMATION
  Report Type: Report from Study
  Country: US (occurrence: None)
  Receive Date: 20230113
  Receipt Date: 20230310
  Transmission Date: 20230418
  Serious: Yes (Hospitalization)
  Sender: FDA-Public Use
  Company Number: US-ROCHE-3262717

PATIENT
  Age: 69 Year
  Sex: Male
  Weight: 65.3 kg

DRUGS (1)
  1. COBIMETINIB [Suspect]
     Active Substance: COBIMETINIB
     Indication: Ductal adenocarcinoma of pancreas
     Route: 048
     Dates: start: 20221203, end: 20221209

REACTIONS (2)
  - Upper gastrointestinal haemorrhage [Recovered/Resolved]
  - Syncope [Unknown]

NARRATIVE: CASE EVENT DATE: 20230105
